FAERS Safety Report 7890093-1 (Version None)
Quarter: 2011Q4

REPORT INFORMATION
  Report Type: 
  Country: None (occurrence: None)
  Receive Date: 20111103
  Receipt Date: 20111026
  Transmission Date: 20120403
  Serious: Yes (Hospitalization)
  Sender: FDA-Public Use
  Company Number: BR-SANOFI-AVENTIS-2011SA071020

PATIENT
  Age: 39 Year
  Sex: Female
  Weight: 67 kg

DRUGS (10)
  1. SOLOSTAR [Suspect]
     Route: 058
  2. GABAPENTIN [Concomitant]
     Indication: DIABETIC NEUROPATHY
     Route: 048
  3. SOLOSTAR [Suspect]
  4. THIOCTACID [Concomitant]
     Indication: DIABETIC NEUROPATHY
     Route: 048
  5. APIDRA SOLOSTAR [Suspect]
  6. GALVUS [Concomitant]
     Indication: DIABETIC NEUROPATHY
     Route: 048
  7. LYRICA [Concomitant]
     Indication: DIABETIC NEUROPATHY
     Route: 048
  8. DULOXETINE HYDROCHLORIDE [Concomitant]
     Indication: DEPRESSION
     Route: 048
  9. LANTUS [Suspect]
  10. LOSARTAN POTASSIUM [Concomitant]
     Indication: HYPERTENSION
     Route: 048

REACTIONS (7)
  - THIRST [None]
  - HYPERGLYCAEMIA [None]
  - CYANOSIS [None]
  - PRODUCT QUALITY ISSUE [None]
  - MALAISE [None]
  - INCORRECT STORAGE OF DRUG [None]
  - DRUG INEFFECTIVE [None]
